FAERS Safety Report 15638531 (Version 1)
Quarter: 2018Q4

REPORT INFORMATION
  Report Type: Spontaneous
  Country: US (occurrence: US)
  Receive Date: 20181120
  Receipt Date: 20181120
  Transmission Date: 20190205
  Serious: No
  Sender: FDA-Public Use
  Company Number: US-ENDO PHARMACEUTICALS INC-2018-022064

PATIENT
  Sex: Male

DRUGS (1)
  1. ALPRAZOLAM TABLETS [Suspect]
     Active Substance: ALPRAZOLAM
     Indication: ANXIETY
     Dosage: 0.5 MG, TID
     Route: 048

REACTIONS (3)
  - Wrong technique in product usage process [Unknown]
  - Somnolence [Unknown]
  - Drug screen negative [Unknown]

NARRATIVE: CASE EVENT DATE: 20170908
